FAERS Safety Report 4338874-5 (Version None)
Quarter: 2004Q2

REPORT INFORMATION
  Report Type: 
  Country: None (occurrence: None)
  Receive Date: 20040409
  Receipt Date: 20040329
  Transmission Date: 20050107
  Serious: Yes (Hospitalization)
  Sender: FDA-Public Use
  Company Number: A044-002-004934

PATIENT
  Age: 90 Year
  Sex: Female

DRUGS (1)
  1. ARICEPT [Suspect]
     Dosage: 5 MG, 1 IN 1 D, ORAL
     Route: 048
     Dates: start: 20011201, end: 20040201

REACTIONS (2)
  - GASTROENTERITIS [None]
  - THROMBOCYTOPENIC PURPURA [None]
